FAERS Safety Report 6439870-4 (Version None)
Quarter: 2009Q4

REPORT INFORMATION
  Report Type: 
  Country: None (occurrence: None)
  Receive Date: 20091113
  Receipt Date: 20091113
  Transmission Date: 20100525
  Serious: Yes (Hospitalization)
  Sender: FDA-Public Use
  Company Number: CL-ABBOTT-09P-034-0606437-00

PATIENT
  Age: 42 Year
  Sex: Female
  Weight: 53 kg

DRUGS (7)
  1. VALCOTE TABLETS [Suspect]
     Indication: BIPOLAR DISORDER
     Route: 048
     Dates: start: 20091023, end: 20091025
  2. VALCOTE TABLETS [Suspect]
     Indication: MANIA
     Route: 048
     Dates: start: 20091026, end: 20091027
  3. VALCOTE TABLETS [Suspect]
     Indication: BIPOLAR I DISORDER
  4. QUETIAPINE [Concomitant]
     Indication: BIPOLAR DISORDER
     Route: 048
  5. QUETIAPINE [Concomitant]
     Indication: BIPOLAR I DISORDER
  6. OLANZAPINE [Concomitant]
     Indication: BIPOLAR DISORDER
     Route: 048
  7. OLANZAPINE [Concomitant]
     Indication: BIPOLAR I DISORDER

REACTIONS (6)
  - ATAXIA [None]
  - CONFUSIONAL STATE [None]
  - DISORIENTATION [None]
  - DYSARTHRIA [None]
  - ENCEPHALOPATHY [None]
  - PSYCHOTIC DISORDER [None]
